FAERS Safety Report 4720978-6 (Version None)
Quarter: 2005Q3

REPORT INFORMATION
  Report Type: 
  Country: None (occurrence: None)
  Receive Date: 20050719
  Receipt Date: 20041011
  Transmission Date: 20060218
  Serious: Yes (Other)
  Sender: FDA-Public Use
  Company Number: 2004238478US

PATIENT
  Age: 74 Year
  Sex: Female
  Weight: 59.4 kg

DRUGS (7)
  1. CELEBREX [Suspect]
     Indication: OSTEOARTHRITIS
     Dosage: 100 MG, QD, ORAL
     Route: 048
     Dates: start: 20040101
  2. DARVOCET-N (DEXTROPROPOXYPHENE NAPSILATE) [Concomitant]
  3. ASPIRIN [Concomitant]
  4. FLEXERIL [Concomitant]
  5. LIPITOR [Concomitant]
  6. SYNTHROID [Concomitant]
  7. VALSARTAN [Concomitant]

REACTIONS (1)
  - CEREBROVASCULAR ACCIDENT [None]
